FAERS Safety Report 6083535-8 (Version None)
Quarter: 2009Q1

REPORT INFORMATION
  Report Type: 
  Country: None (occurrence: None)
  Receive Date: 20090219
  Receipt Date: 20080815
  Transmission Date: 20090719
  Serious: Yes (Death, Hospitalization)
  Sender: FDA-Public Use
  Company Number: US-ROCHE-579272

PATIENT
  Sex: Male
  Weight: 139.7 kg

DRUGS (17)
  1. CAPECITABINE [Suspect]
     Route: 048
     Dates: end: 20080712
  2. CAPECITABINE [Suspect]
     Route: 048
     Dates: start: 20080225
  3. CAPECITABINE [Suspect]
     Dosage: ON DAYS 01- 07, 15- 21 AND 29- 35.
     Route: 048
     Dates: start: 20080330, end: 20080330
  4. OXALIPLATIN [Suspect]
     Route: 042
     Dates: end: 20080712
  5. OXALIPLATIN [Suspect]
     Dosage: ON DAYS 01, 08, 15, 22 AND 29.
     Route: 042
     Dates: start: 20080324, end: 20080324
  6. OXALIPLATIN [Suspect]
     Route: 042
     Dates: start: 20080225
  7. DOCETAXEL [Suspect]
     Route: 042
     Dates: end: 20080712
  8. DOCETAXEL [Suspect]
     Dosage: ON DAYS 01. 08, 15, 22 AND 29.
     Route: 042
     Dates: start: 20080324, end: 20080324
  9. DOCETAXEL [Suspect]
     Route: 042
     Dates: start: 20080225
  10. TRICOR [Concomitant]
     Route: 048
     Dates: start: 20040101
  11. ZETIA [Concomitant]
     Route: 048
     Dates: start: 20070801
  12. CADUET [Concomitant]
     Route: 048
     Dates: start: 20040101
  13. AMARYL [Concomitant]
     Route: 048
     Dates: start: 20040101
  14. LOTENSIN HCT [Concomitant]
     Indication: HYPERTENSION
     Route: 048
     Dates: start: 20070801
  15. ASPIRIN [Concomitant]
     Indication: ANTICOAGULANT THERAPY
     Route: 048
     Dates: start: 20080401
  16. JANUVIA [Concomitant]
     Route: 048
     Dates: start: 20071201
  17. ARIXTRA [Concomitant]
     Indication: PULMONARY EMBOLISM
     Dosage: DURATION OF THERPAY: 02 WEEKS AND 05 DAYS.
     Route: 058
     Dates: start: 20080409, end: 20080427

REACTIONS (4)
  - GASTROINTESTINAL ANASTOMOTIC LEAK [None]
  - MEDIASTINITIS [None]
  - TRACHEAL DISORDER [None]
  - TRACHEAL FISTULA [None]
